FAERS Safety Report 4417685-6 (Version None)
Quarter: 2004Q2

REPORT INFORMATION
  Report Type: 
  Country: None (occurrence: None)
  Receive Date: 20040629
  Receipt Date: 20031205
  Transmission Date: 20050107
  Serious: Yes (Hospitalization, Other)
  Sender: FDA-Public Use
  Company Number: USA031253997

PATIENT
  Age: 75 Year
  Sex: Male

DRUGS (1)
  1. HUMALOG [Suspect]
     Dosage: 9 U/2 DAY

REACTIONS (5)
  - INSOMNIA [None]
  - LEG AMPUTATION [None]
  - RESTLESSNESS [None]
  - TREMOR [None]
  - WEIGHT INCREASED [None]
